FAERS Safety Report 9418764 (Version 1)
Quarter: 2013Q3

REPORT INFORMATION
  Report Type: Spontaneous
  Country: US (occurrence: US)
  Receive Date: 20130725
  Receipt Date: 20130725
  Transmission Date: 20140515
  Serious: Yes (Other)
  Sender: FDA-Public Use
  Company Number: US-PFIZER INC-2012161256

PATIENT
  Sex: Male

DRUGS (1)
  1. MORPHINE SULFATE [Suspect]
     Indication: DRUG ABUSE
     Dosage: UNK
     Route: 065

REACTIONS (1)
  - Drug abuse [Unknown]
